FAERS Safety Report 4686555-0 (Version None)
Quarter: 2005Q2

REPORT INFORMATION
  Report Type: 
  Country: None (occurrence: None)
  Receive Date: 20050607
  Receipt Date: 20050524
  Transmission Date: 20051028
  Serious: Yes (Death)
  Sender: FDA-Public Use
  Company Number: 2005079472

PATIENT
  Age: 28 Year
  Sex: Male

DRUGS (12)
  1. VIRACEPT [Suspect]
     Indication: HIV INFECTION
     Dosage: 1250 MG (1250 MG, 2 IN 1 D), ORAL
     Route: 048
     Dates: end: 20040804
  2. CELEXA [Suspect]
     Indication: ILL-DEFINED DISORDER
     Dosage: 40 MG, ORAL
     Route: 048
     Dates: end: 20040804
  3. COMBIVIR [Suspect]
     Indication: HIV INFECTION
     Dates: end: 20040804
  4. DEPAKOTE [Concomitant]
  5. LIPITOR [Concomitant]
  6. ATIVAN [Concomitant]
  7. ZYPREXA [Concomitant]
  8. NIZORAL [Concomitant]
  9. BENADRYL [Concomitant]
  10. TYLENOL [Concomitant]
  11. MULTIVITAMIN [Concomitant]
  12. ZITHROMAX [Concomitant]

REACTIONS (25)
  - ACCIDENTAL OVERDOSE [None]
  - ATHEROSCLEROSIS [None]
  - BLOOD ALCOHOL INCREASED [None]
  - BODY TEMPERATURE DECREASED [None]
  - CORONARY ARTERY ATHEROSCLEROSIS [None]
  - CYANOSIS [None]
  - DRUG INTERACTION [None]
  - DRUG TOXICITY [None]
  - FOAMING AT MOUTH [None]
  - GASTRIC FLUID ANALYSIS ABNORMAL [None]
  - HEPATIC CONGESTION [None]
  - INTRACARDIAC THROMBUS [None]
  - LIVIDITY [None]
  - LOSS OF CONSCIOUSNESS [None]
  - LYMPHADENOPATHY [None]
  - MUCOSAL DISCOLOURATION [None]
  - NERVOUS SYSTEM DISORDER [None]
  - OCULAR HYPERAEMIA [None]
  - PERICARDIAL EFFUSION [None]
  - PLEURAL EFFUSION [None]
  - PNEUMONIA [None]
  - RENAL DISORDER [None]
  - RHINORRHOEA [None]
  - SPLENOMEGALY [None]
  - VENTRICULAR HYPERTROPHY [None]
